FAERS Safety Report 10071581 (Version 1)
Quarter: 2014Q2

REPORT INFORMATION
  Report Type: Report from Study
  Country: MX (occurrence: MX)
  Receive Date: 20140410
  Receipt Date: 20140410
  Transmission Date: 20141212
  Serious: Yes (Life-Threatening, Other)
  Sender: FDA-Public Use
  Company Number: PHHY2014MX043096

PATIENT
  Age: 54 Year
  Sex: Female
  Weight: 57.5 kg

DRUGS (3)
  1. ZOMETA [Suspect]
     Indication: OSTEOPOROSIS
     Dosage: 4 MG/5 ML, ANNUAL
     Route: 042
     Dates: start: 20140220
  2. ZOMETA [Suspect]
     Indication: OFF LABEL USE
  3. ALPHA D [Concomitant]
     Indication: OSTEOPOROSIS
     Dosage: 1 DF, DAILY

REACTIONS (13)
  - Feeling abnormal [Recovered/Resolved]
  - Nasopharyngitis [Recovered/Resolved]
  - Feeling hot [Recovered/Resolved]
  - Mobility decreased [Recovered/Resolved]
  - Head discomfort [Recovered/Resolved]
  - Tremor [Recovered/Resolved]
  - Pyrexia [Recovered/Resolved]
  - Anxiety [Recovered/Resolved]
  - Hyperhidrosis [Recovered/Resolved]
  - Bone pain [Recovered/Resolved]
  - Back pain [Recovered/Resolved]
  - Pain [Recovered/Resolved]
  - Blood cholesterol abnormal [Not Recovered/Not Resolved]
